FAERS Safety Report 15068310 (Version 1)
Quarter: 2018Q2

REPORT INFORMATION
  Report Type: Spontaneous
  Country: US (occurrence: US)
  Receive Date: 20180626
  Receipt Date: 20180626
  Transmission Date: 20180711
  Serious: No
  Sender: FDA-Public Use
  Company Number: US-DSJP-DSU-2018-117779

PATIENT
  Sex: Female
  Weight: 54.42 kg

DRUGS (1)
  1. WELCHOL [Suspect]
     Active Substance: COLESEVELAM HYDROCHLORIDE
     Indication: BLOOD CHOLESTEROL INCREASED
     Dosage: 1875 MG, BID
     Route: 048
     Dates: start: 2011, end: 2018

REACTIONS (3)
  - Sphincter of Oddi dysfunction [Unknown]
  - Constipation [Recovered/Resolved]
  - Deficiency of bile secretion [Unknown]

NARRATIVE: CASE EVENT DATE: 2015
